FAERS Safety Report 10349193 (Version 3)
Quarter: 2014Q3

REPORT INFORMATION
  Report Type: Report from Study
  Country: US (occurrence: US)
  Receive Date: 20140730
  Receipt Date: 20140806
  Transmission Date: 20150326
  Serious: Yes (Hospitalization)
  Sender: FDA-Public Use
  Company Number: US-ACTELION-A-US2011-58410

PATIENT
  Age: 57 Year
  Sex: Female

DRUGS (3)
  1. ADCIRCA [Concomitant]
     Active Substance: TADALAFIL
     Dosage: 40 MG, UNK
     Dates: start: 201006
  2. TYVASO [Concomitant]
     Active Substance: TREPROSTINIL
     Dosage: 12 PUFF, QID
     Dates: start: 201103
  3. TRACLEER [Suspect]
     Active Substance: BOSENTAN\BOSENTAN MONOHYDRATE
     Indication: PULMONARY ARTERIAL HYPERTENSION
     Dosage: 125 MG, BID
     Route: 048
     Dates: start: 200608

REACTIONS (6)
  - Condition aggravated [Recovered/Resolved]
  - Fluid overload [Recovered/Resolved]
  - Dyspnoea [Unknown]
  - Pulmonary arterial hypertension [Recovered/Resolved]
  - Pulmonary oedema [Unknown]
  - Right ventricular failure [Recovered/Resolved]

NARRATIVE: CASE EVENT DATE: 20111206
